FAERS Safety Report 10033069 (Version 1)
Quarter: 2014Q1

REPORT INFORMATION
  Report Type: Report from Study
  Country: IL (occurrence: IL)
  Receive Date: 20140324
  Receipt Date: 20140324
  Transmission Date: 20141002
  Serious: Yes (Death)
  Sender: FDA-Public Use
  Company Number: PHHY2014IL035165

PATIENT
  Age: 40 Year
  Sex: Female

DRUGS (3)
  1. SANDOSTATIN LAR [Suspect]
     Indication: CARCINOID TUMOUR
     Dosage: 30 MG, 1Q4W
     Route: 030
     Dates: start: 20111229
  2. SANDOSTATIN LAR [Suspect]
     Dosage: 30 MG, 1Q4W
     Route: 030
     Dates: start: 20140131
  3. SANDOSTATIN LAR [Suspect]
     Dosage: 30 MG, 1Q4W
     Route: 030
     Dates: start: 20140302

REACTIONS (1)
  - Death [Fatal]
